FAERS Safety Report 9748338 (Version 3)
Quarter: 2014Q1

REPORT INFORMATION
  Report Type: Report from Study
  Country: DE (occurrence: DE)
  Receive Date: 20131212
  Receipt Date: 20140306
  Transmission Date: 20141002
  Serious: Yes (Hospitalization)
  Sender: FDA-Public Use
  Company Number: PHHY2013DE143915

PATIENT
  Sex: Female
  Weight: 64 kg

DRUGS (3)
  1. AFINITOR [Suspect]
     Indication: BREAST CANCER METASTATIC
     Dosage: 10 MG, QD
     Route: 048
     Dates: start: 20130111
  2. ZOMETA [Suspect]
     Dosage: 4 MG, EVERY 4 WEEKS
     Dates: start: 20120101, end: 20131219
  3. EXEMESTANE [Concomitant]
     Indication: BREAST CANCER METASTATIC
     Dosage: 25 MG, QD
     Route: 048
     Dates: start: 20130111

REACTIONS (1)
  - Osteonecrosis of jaw [Recovered/Resolved]
